FAERS Safety Report 12520916 (Version 4)
Quarter: 2020Q2

REPORT INFORMATION
  Report Type: Spontaneous
  Country: US (occurrence: US)
  Receive Date: 20160701
  Receipt Date: 20200615
  Transmission Date: 20200713
  Serious: Yes (Hospitalization, Other)
  Sender: FDA-Public Use
  Company Number: US-BAYER-2016-111646

PATIENT
  Age: 71 Year
  Sex: Male
  Weight: 83.99 kg

DRUGS (10)
  1. RANITIDINE. [Concomitant]
     Active Substance: RANITIDINE
     Dosage: 150 MG, QD
     Route: 065
  2. LEVOTHYROXINE. [Concomitant]
     Active Substance: LEVOTHYROXINE
     Dosage: .025 MG, UNK
     Route: 065
  3. QUINAPRIL. [Concomitant]
     Active Substance: QUINAPRIL
     Indication: BLOOD CHOLESTEROL ABNORMAL
     Dosage: 10 MG, QD
     Route: 065
  4. PRAVASTATIN. [Concomitant]
     Active Substance: PRAVASTATIN
     Dosage: 40 MG, QD
     Route: 065
  5. ZINC. [Concomitant]
     Active Substance: ZINC
     Dosage: 50 MG, UNK
     Route: 065
  6. XARELTO [Suspect]
     Active Substance: RIVAROXABAN
     Indication: THROMBOSIS
     Dosage: 20 MG, QD
     Route: 048
     Dates: start: 20150102, end: 20160503
  7. XARELTO [Suspect]
     Active Substance: RIVAROXABAN
     Indication: DEEP VEIN THROMBOSIS
     Dosage: 20 MG, QD
     Route: 048
     Dates: start: 20160503
  8. LYRICA [Concomitant]
     Active Substance: PREGABALIN
     Indication: NEUROPATHY PERIPHERAL
     Dosage: 300 MG, BID
     Route: 065
  9. VITAMIN C [Concomitant]
     Active Substance: ASCORBIC ACID
     Dosage: UNK
     Route: 065
  10. BAYER LOW DOSE [Suspect]
     Active Substance: ASPIRIN
     Indication: PRODUCT USED FOR UNKNOWN INDICATION
     Dosage: 81 MG, QD
     Route: 065

REACTIONS (3)
  - Bladder neoplasm [Unknown]
  - Gastrointestinal haemorrhage [Recovering/Resolving]
  - Internal haemorrhage [Recovering/Resolving]

NARRATIVE: CASE EVENT DATE: 201506
